FAERS Safety Report 4878269-9 (Version None)
Quarter: 2006Q1

REPORT INFORMATION
  Report Type: 
  Country: None (occurrence: None)
  Receive Date: 20060111
  Receipt Date: 20041115
  Transmission Date: 20060701
  Serious: Yes (Hospitalization, Disabling)
  Sender: FDA-Public Use
  Company Number: US-MERCK-0411USA02700

PATIENT
  Age: 61 Year
  Sex: Female
  Weight: 84 kg

DRUGS (2)
  1. VIOXX [Suspect]
     Indication: ARTHRITIS
     Route: 048
     Dates: start: 20010101, end: 20021201
  2. IBUPROFEN [Concomitant]
     Route: 065

REACTIONS (6)
  - ADVERSE EVENT [None]
  - ARTERIAL REPAIR [None]
  - ARTHROPATHY [None]
  - CEREBROVASCULAR ACCIDENT [None]
  - CORONARY ARTERY OCCLUSION [None]
  - MYOCARDIAL INFARCTION [None]
